FAERS Safety Report 9051068 (Version 2)
Quarter: 2013Q1

REPORT INFORMATION
  Report Type: Spontaneous
  Country: US (occurrence: US)
  Receive Date: 20130206
  Receipt Date: 20130208
  Transmission Date: 20140127
  Serious: No
  Sender: FDA-Public Use
  Company Number: US-B.I. PHARMACEUTICALS,INC./RIDGEFIELD-2013-BI-03284BP

PATIENT
  Age: 74 None
  Sex: Female

DRUGS (5)
  1. SPIRIVA [Suspect]
     Indication: EMPHYSEMA
     Dosage: 18 MCG
     Route: 055
  2. SINGULAIR [Concomitant]
     Route: 048
  3. THEOPHYLLINE [Concomitant]
     Route: 048
  4. FORADIL [Concomitant]
     Route: 055
  5. LEVOTHYROXINE [Concomitant]
     Route: 048

REACTIONS (4)
  - Cough [Not Recovered/Not Resolved]
  - Product quality issue [Recovered/Resolved]
  - Product quality issue [Recovered/Resolved]
  - Product quality issue [Recovered/Resolved]
